FAERS Safety Report 4853027-X (Version None)
Quarter: 2005Q4

REPORT INFORMATION
  Report Type: 
  Country: None (occurrence: None)
  Receive Date: 20051212
  Receipt Date: 20051121
  Transmission Date: 20060501
  Serious: No
  Sender: FDA-Public Use
  Company Number: US200511003393

PATIENT
  Age: 71 Year
  Sex: Female

DRUGS (2)
  1. CYMBALTA [Suspect]
     Dosage: 60 MG
     Dates: start: 20050701
  2. AMBIEN [Concomitant]

REACTIONS (2)
  - DIARRHOEA [None]
  - HEPATIC ENZYME INCREASED [None]
